FAERS Safety Report 23231927 (Version 1)
Quarter: 2023Q4

REPORT INFORMATION
  Report Type: Spontaneous
  Country: US (occurrence: None)
  Receive Date: 20231126
  Receipt Date: 20231126
  Transmission Date: 20240110
  Serious: Yes (Disabling)
  Sender: FDA-Public Use
  Company Number: None

PATIENT
  Age: 84 Year
  Sex: Male
  Weight: 57.15 kg

DRUGS (5)
  1. LEVAQUIN [Suspect]
     Active Substance: LEVOFLOXACIN
     Indication: Drug therapy
     Route: 048
     Dates: start: 20031110, end: 20031110
  2. TAMSULOSIN [Concomitant]
     Active Substance: TAMSULOSIN
  3. Immunities [Concomitant]
  4. ZINC [Concomitant]
     Active Substance: PYRITHIONE ZINC\ZINC\ZINC CHLORIDE
  5. QUERCETIN [Concomitant]
     Active Substance: QUERCETIN

REACTIONS (6)
  - Peripheral coldness [None]
  - Insomnia [None]
  - Peripheral swelling [None]
  - Pain in extremity [None]
  - Feeling abnormal [None]
  - Legal problem [None]

NARRATIVE: CASE EVENT DATE: 20231120
